FAERS Safety Report 7248409-5 (Version None)
Quarter: 2011Q1

REPORT INFORMATION
  Report Type: 
  Country: None (occurrence: None)
  Receive Date: 20110127
  Receipt Date: 20110120
  Transmission Date: 20110831
  Serious: Yes (Other)
  Sender: FDA-Public Use
  Company Number: US-US-EMD SERONO, INC.-7037414

PATIENT
  Sex: Female

DRUGS (3)
  1. ZANAFLEX [Concomitant]
  2. BACLOFEN [Concomitant]
  3. REBIF [Suspect]
     Indication: PRODUCT USED FOR UNKNOWN INDICATION
     Route: 058
     Dates: start: 20040715

REACTIONS (1)
  - GRAND MAL CONVULSION [None]
